FAERS Safety Report 23912260 (Version 2)
Quarter: 2024Q2

REPORT INFORMATION
  Report Type: Spontaneous
  Country: JP (occurrence: None)
  Receive Date: 20240528
  Receipt Date: 20240610
  Transmission Date: 20240716
  Serious: Yes (Death)
  Sender: FDA-Public Use
  Company Number: 2023A263445

PATIENT
  Age: 71 Year
  Sex: Female

DRUGS (3)
  1. ONDEXXYA [Suspect]
     Active Substance: ANDEXANET ALFA
     Indication: Basal ganglia haemorrhage
     Dosage: INTRAVENOUS INJECTION 200MG880.0MG UNKNOWN
     Route: 042
  2. ELIQUIS [Concomitant]
     Active Substance: APIXABAN
     Dosage: DOSE UNKNOWN
     Route: 065
  3. ELIQUIS [Concomitant]
     Active Substance: APIXABAN
     Dosage: DOSE UNKNOWN

REACTIONS (3)
  - Cerebellar infarction [Fatal]
  - Pneumonia aspiration [Fatal]
  - Urinary tract infection [Unknown]
